FAERS Safety Report 18678231 (Version 4)
Quarter: 2021Q1

REPORT INFORMATION
  Report Type: Spontaneous
  Country: US (occurrence: US)
  Receive Date: 20201229
  Receipt Date: 20210125
  Transmission Date: 20210419
  Serious: Yes (Death, Hospitalization, Other)
  Sender: FDA-Public Use
  Company Number: US-VALIDUS PHARMACEUTICALS LLC-US-2020VAL001089

PATIENT
  Age: 72 Year
  Sex: Female
  Weight: 60.3 kg

DRUGS (13)
  1. FUROSEMIDE. [Suspect]
     Active Substance: FUROSEMIDE
     Indication: PRODUCT USED FOR UNKNOWN INDICATION
     Dosage: 20 MG, UNK
     Route: 065
  2. AMBRISENTAN [Suspect]
     Active Substance: AMBRISENTAN
     Indication: PRODUCT USED FOR UNKNOWN INDICATION
     Dosage: UNK
     Route: 065
  3. REMODULIN [Suspect]
     Active Substance: TREPROSTINIL
     Dosage: 0.087 ?G/KG, CONT
     Route: 041
     Dates: start: 202011
  4. ADEMPAS [Suspect]
     Active Substance: RIOCIGUAT
     Indication: PRODUCT USED FOR UNKNOWN INDICATION
     Dosage: UNK
     Route: 065
  5. TADALAFIL. [Suspect]
     Active Substance: TADALAFIL
     Indication: PULMONARY ARTERIAL HYPERTENSION
     Dosage: UNK
     Route: 065
  6. ADEMPAS [Suspect]
     Active Substance: RIOCIGUAT
     Dosage: UNK
     Route: 065
  7. REMODULIN [Suspect]
     Active Substance: TREPROSTINIL
     Dosage: 0.085 ?G/KG, CONT
     Route: 041
  8. FUROSEMIDE. [Suspect]
     Active Substance: FUROSEMIDE
     Dosage: UNK
     Route: 065
  9. REMODULIN [Suspect]
     Active Substance: TREPROSTINIL
     Indication: PULMONARY ARTERIAL HYPERTENSION
     Dosage: UNK UNK, CONT
     Route: 041
     Dates: start: 20190710
  10. REMODULIN [Suspect]
     Active Substance: TREPROSTINIL
     Dosage: UNK UNK, CONT
     Route: 041
  11. REMODULIN [Suspect]
     Active Substance: TREPROSTINIL
     Dosage: UNK UNK, CONT
     Route: 041
  12. FUROSEMIDE. [Suspect]
     Active Substance: FUROSEMIDE
     Dosage: 40 MG, UNK
     Route: 065
     Dates: start: 202012
  13. REMODULIN [Suspect]
     Active Substance: TREPROSTINIL
     Dosage: CONCENTRATION 1 MG/ML
     Route: 042
     Dates: start: 20191007

REACTIONS (21)
  - Insomnia [Unknown]
  - Blood pressure decreased [Unknown]
  - Malaise [Unknown]
  - Product use complaint [Unknown]
  - Peripheral swelling [Unknown]
  - Hypoxia [Unknown]
  - Oxygen saturation decreased [Unknown]
  - Pollakiuria [Unknown]
  - Asthenia [Unknown]
  - Diarrhoea [Unknown]
  - Drug ineffective [Unknown]
  - Pericardial effusion [Unknown]
  - Right ventricular failure [Fatal]
  - Anxiety [Unknown]
  - Vomiting [Unknown]
  - Ear discomfort [Unknown]
  - Flushing [Unknown]
  - Headache [Unknown]
  - Gastrooesophageal reflux disease [Unknown]
  - Hot flush [Unknown]
  - Dyspnoea [Unknown]

NARRATIVE: CASE EVENT DATE: 202011
